FAERS Safety Report 5100523-6 (Version None)
Quarter: 2006Q3

REPORT INFORMATION
  Report Type: 
  Country: None (occurrence: None)
  Receive Date: 20060907
  Receipt Date: 20060907
  Transmission Date: 20061208
  Serious: Yes (Other)
  Sender: FDA-Public Use
  Company Number: None

PATIENT
  Age: 41 Year
  Sex: Male
  Weight: 104.3273 kg

DRUGS (2)
  1. ALCAINE [Suspect]
     Indication: EYE INJURY
     Dosage: 2 DROPS ONCE OPHTHALMIC
     Route: 047
  2. FLUORETS CHAUVIN [Suspect]
     Indication: EYE INJURY
     Dosage: 1 UNIT ONCE OPHTHALMIC
     Route: 047

REACTIONS (5)
  - APPLICATION SITE PAIN [None]
  - HEART RATE DECREASED [None]
  - POSTICTAL STATE [None]
  - TONIC CLONIC MOVEMENTS [None]
  - UNRESPONSIVE TO STIMULI [None]
